FAERS Safety Report 7961469-9 (Version None)
Quarter: 2011Q4

REPORT INFORMATION
  Report Type: 
  Country: None (occurrence: None)
  Receive Date: 20111202
  Receipt Date: 20111202
  Transmission Date: 20120403
  Serious: Yes (Disabling)
  Sender: FDA-Public Use
  Company Number: None

PATIENT
  Sex: Female
  Weight: 70.5 kg

DRUGS (1)
  1. ARIMIDEX [Suspect]
     Dosage: 1 MG DAILY ORAL
     Route: 048
     Dates: start: 20100901, end: 20110901

REACTIONS (6)
  - GRIP STRENGTH DECREASED [None]
  - NODULE [None]
  - ARTHROPATHY [None]
  - ARTHRALGIA [None]
  - PAIN IN EXTREMITY [None]
  - ACTIVITIES OF DAILY LIVING IMPAIRED [None]
